FAERS Safety Report 4635235-6 (Version None)
Quarter: 2005Q2

REPORT INFORMATION
  Report Type: 
  Country: None (occurrence: None)
  Receive Date: 20050414
  Receipt Date: 20050408
  Transmission Date: 20051028
  Serious: Yes (Death, Hospitalization, Other)
  Sender: FDA-Public Use
  Company Number: PHBS2005US05072

PATIENT
  Age: 27 Year
  Sex: Male

DRUGS (10)
  1. ZIPRASIDONE [Concomitant]
  2. ARIPIPRAZOLE [Concomitant]
  3. CLOZAPINE [Suspect]
     Indication: SCHIZOPHRENIA, PARANOID TYPE
     Dosage: 400 MG/D
     Route: 065
  4. CLOZAPINE [Suspect]
     Dosage: 200 MG/D
     Route: 065
  5. CLOZAPINE [Suspect]
     Dosage: 300 MG/D
     Route: 065
  6. OLANZAPINE [Concomitant]
  7. RISPERIDONE [Concomitant]
     Dosage: 3 MG, BID
  8. QUETIAPINE [Concomitant]
     Dosage: 800 MG/D
     Route: 065
  9. HALOPERIDOL [Concomitant]
     Dosage: 5 MG/D
     Route: 065
  10. LAMOTRIGINE [Concomitant]
     Dosage: 200 MG/D
     Route: 065

REACTIONS (15)
  - BLOOD CHOLESTEROL INCREASED [None]
  - BLOOD TRIGLYCERIDES INCREASED [None]
  - BODY MASS INDEX INCREASED [None]
  - CIRCULATORY COLLAPSE [None]
  - DIABETES MELLITUS INSULIN-DEPENDENT [None]
  - DIABETES MELLITUS NON-INSULIN-DEPENDENT [None]
  - DIFFICULTY IN WALKING [None]
  - HYPERTENSION [None]
  - LOW DENSITY LIPOPROTEIN INCREASED [None]
  - METABOLIC SYNDROME [None]
  - SALIVARY HYPERSECRETION [None]
  - SEDATION [None]
  - SLEEP DISORDER [None]
  - SNORING [None]
  - WEIGHT INCREASED [None]
